FAERS Safety Report 14952305 (Version 1)
Quarter: 2018Q2

REPORT INFORMATION
  Report Type: Spontaneous
  Country: US (occurrence: US)
  Receive Date: 20180530
  Receipt Date: 20180530
  Transmission Date: 20180711
  Serious: No
  Sender: FDA-Public Use
  Company Number: US-PFIZER INC-2018214397

PATIENT
  Age: 72 Year
  Sex: Female
  Weight: 112 kg

DRUGS (10)
  1. GABAPENTIN. [Concomitant]
     Active Substance: GABAPENTIN
     Indication: PAIN
     Dosage: 300 MG, 2X/DAY
     Dates: start: 20180519
  2. CLINDAMYCIN HCL [Suspect]
     Active Substance: CLINDAMYCIN HYDROCHLORIDE
     Dosage: 600 MG, 4X/DAY
  3. CALCIUM [Concomitant]
     Active Substance: CALCIUM
     Dosage: 600 MG, 1X/DAY
  4. LOSARTAN. [Concomitant]
     Active Substance: LOSARTAN
     Indication: BLOOD PRESSURE ABNORMAL
     Dosage: 1 DF, 1X/DAY
  5. NAPROXEN. [Concomitant]
     Active Substance: NAPROXEN
     Indication: ARTHRALGIA
     Dosage: 500 MG, 1X/DAY AT NIGHT
  6. ASPIRIN. [Concomitant]
     Active Substance: ASPIRIN
     Dosage: 81 MG, 1X/DAY
  7. GINSENG [Concomitant]
     Active Substance: ASIAN GINSENG
     Dosage: 200 MG, 1X/DAY
  8. METFORMIN [Concomitant]
     Active Substance: METFORMIN HYDROCHLORIDE
     Indication: DIABETES MELLITUS
     Dosage: 500 MG, 2X/DAY
  9. TYLENOL [Concomitant]
     Active Substance: ACETAMINOPHEN
     Indication: ARTHRALGIA
     Dosage: 500 MG, 2X/DAY
  10. FISH OIL [Concomitant]
     Active Substance: FISH OIL
     Dosage: 3 DF, 1X/DAY  IN THE MORNING

REACTIONS (3)
  - Product use issue [Unknown]
  - Overdose [Unknown]
  - Diarrhoea [Not Recovered/Not Resolved]
